FAERS Safety Report 10430319 (Version 2)
Quarter: 2014Q3

REPORT INFORMATION
  Report Type: Report from Study
  Country: KR (occurrence: KR)
  Receive Date: 20140904
  Receipt Date: 20140922
  Transmission Date: 20150326
  Serious: Yes (Death, Hospitalization)
  Sender: FDA-Public Use
  Company Number: KR-BAYER-2014-127468

PATIENT
  Age: 77 Year
  Sex: Male

DRUGS (8)
  1. MAGNESIUM OXIDE. [Concomitant]
     Active Substance: MAGNESIUM OXIDE
     Dosage: 4 TABLETS
     Dates: start: 20140804, end: 20140823
  2. SORAFENIB (RAF KINASE INHIBITOR) [Suspect]
     Active Substance: SORAFENIB
     Indication: HEPATOCELLULAR CARCINOMA
     Dosage: DAILY DOSE 800 MG
     Route: 048
     Dates: start: 20140728, end: 20140821
  3. MEGACE [Concomitant]
     Active Substance: MEGESTROL ACETATE
     Dosage: 1 PACK
     Dates: start: 20140717, end: 20140823
  4. PENNEL [Concomitant]
     Dosage: 3 CAPSULES DAILY
     Dates: start: 20140723, end: 20140803
  5. ULTRACET [Concomitant]
     Active Substance: ACETAMINOPHEN\TRAMADOL HYDROCHLORIDE
     Dosage: 1 TABLET
     Dates: start: 20140723, end: 20140803
  6. TRAZODONE HYDROCHLORIDE. [Concomitant]
     Active Substance: TRAZODONE HYDROCHLORIDE
     Dosage: 1 TABLET (25 MG)
     Dates: start: 20140728, end: 20140803
  7. MAGNESIUM OXIDE. [Concomitant]
     Active Substance: MAGNESIUM OXIDE
     Dosage: 2 TABLETS
     Dates: start: 20140723, end: 20140803
  8. PENNEL [Concomitant]
     Dosage: 2 CAPSULES
     Dates: start: 20140804, end: 20140817

REACTIONS (4)
  - Condition aggravated [Fatal]
  - Decreased appetite [Fatal]
  - Pain [Fatal]
  - Abdominal distension [Fatal]

NARRATIVE: CASE EVENT DATE: 20140822
